FAERS Safety Report 6483965-6 (Version None)
Quarter: 2009Q4

REPORT INFORMATION
  Report Type: 
  Country: None (occurrence: None)
  Receive Date: 20091209
  Receipt Date: 20091204
  Transmission Date: 20100525
  Serious: Yes (Other)
  Sender: FDA-Public Use
  Company Number: DE-WYE-G05059709

PATIENT
  Age: 12 Month
  Sex: Male
  Weight: 10 kg

DRUGS (2)
  1. REFACTO [Suspect]
     Indication: FACTOR VIII DEFICIENCY
     Dosage: START DATE UNKNOWN, DOSE 2 X 250 IU PER DAY
     Route: 042
  2. REFACTO [Suspect]
     Route: 042

REACTIONS (2)
  - FACTOR VIII INHIBITION [None]
  - HAEMATOMA [None]
